FAERS Safety Report 6544773-0 (Version None)
Quarter: 2010Q1

REPORT INFORMATION
  Report Type: 
  Country: None (occurrence: None)
  Receive Date: 20100121
  Receipt Date: 20100118
  Transmission Date: 20100710
  Serious: Yes (Disabling)
  Sender: FDA-Public Use
  Company Number: IT-BRISTOL-MYERS SQUIBB COMPANY-14938575

PATIENT
  Sex: Male

DRUGS (1)
  1. ETOPOSIDE [Suspect]

REACTIONS (1)
  - NEUROLOGICAL SYMPTOM [None]
